FAERS Safety Report 6707383-8 (Version None)
Quarter: 2010Q2

REPORT INFORMATION
  Report Type: 
  Country: None (occurrence: None)
  Receive Date: 20100503
  Receipt Date: 20090508
  Transmission Date: 20101027
  Serious: No
  Sender: FDA-Public Use
  Company Number: US-ASTRAZENECA-2009UW06779

PATIENT
  Age: 2 Year
  Sex: Male
  Weight: 14.2 kg

DRUGS (2)
  1. NEXIUM [Suspect]
     Indication: GASTROOESOPHAGEAL REFLUX DISEASE
     Route: 048
     Dates: start: 20090319, end: 20090326
  2. NEXIUM [Suspect]
     Route: 048
     Dates: start: 20090319, end: 20090326

REACTIONS (7)
  - AGITATION [None]
  - CONSTIPATION [None]
  - ENERGY INCREASED [None]
  - INSOMNIA [None]
  - IRRITABILITY [None]
  - PSYCHIATRIC SYMPTOM [None]
  - RESTLESSNESS [None]
